FAERS Safety Report 5388846-7 (Version None)
Quarter: 2007Q3

REPORT INFORMATION
  Report Type: 
  Country: None (occurrence: None)
  Receive Date: 20070716
  Receipt Date: 20070703
  Transmission Date: 20080115
  Serious: Yes (Hospitalization)
  Sender: FDA-Public Use
  Company Number: US-SHR-US-2007-009209

PATIENT
  Age: 71 Year
  Sex: Female
  Weight: 65.76 kg

DRUGS (4)
  1. BETASERON [Suspect]
     Indication: RELAPSING-REMITTING MULTIPLE SCLEROSIS
     Dosage: 8 MIU, EVERY 2D
     Route: 058
     Dates: start: 19940914
  2. TRAMADOL HCL [Concomitant]
  3. GLYCOLAX [Concomitant]
  4. LEXAPRO [Concomitant]

REACTIONS (3)
  - ACCIDENT [None]
  - FIBULA FRACTURE [None]
  - TIBIA FRACTURE [None]
